FAERS Safety Report 4854952-6 (Version None)
Quarter: 2005Q4

REPORT INFORMATION
  Report Type: 
  Country: None (occurrence: None)
  Receive Date: 20051213
  Receipt Date: 20050607
  Transmission Date: 20060501
  Serious: Yes (Other)
  Sender: FDA-Public Use
  Company Number: 18868

PATIENT
  Sex: Male

DRUGS (2)
  1. CISPLATIN [Suspect]
     Indication: LUNG NEOPLASM MALIGNANT
     Dosage: UNKNOWN DOSE/Q 2WEEKS
     Dates: start: 20050301
  2. NAVELBINE [Concomitant]

REACTIONS (2)
  - DEAFNESS [None]
  - TINNITUS [None]
